FAERS Safety Report 16386200 (Version 5)
Quarter: 2020Q3

REPORT INFORMATION
  Report Type: Report from Study
  Country: US (occurrence: US)
  Receive Date: 20190603
  Receipt Date: 20200718
  Transmission Date: 20201102
  Serious: No
  Sender: FDA-Public Use
  Company Number: PHEH2019US023347

PATIENT
  Age: 26 Year
  Sex: Male

DRUGS (1)
  1. GILENYA [Suspect]
     Active Substance: FINGOLIMOD HYDROCHLORIDE
     Indication: MULTIPLE SCLEROSIS
     Dosage: 0.5 MG, QD
     Route: 048
     Dates: start: 20190228

REACTIONS (8)
  - Dry mouth [Unknown]
  - Arthralgia [Unknown]
  - Dyspnoea [Unknown]
  - Limb discomfort [Unknown]
  - Feeling abnormal [Unknown]
  - Dizziness [Unknown]
  - Stress [Unknown]
  - Temperature intolerance [Unknown]

NARRATIVE: CASE EVENT DATE: 20200708
